FAERS Safety Report 23731352 (Version 2)
Quarter: 2024Q2

REPORT INFORMATION
  Report Type: Report from Study
  Country: US (occurrence: US)
  Receive Date: 20240411
  Receipt Date: 20240605
  Transmission Date: 20240716
  Serious: Yes (Other)
  Sender: FDA-Public Use
  Company Number: US-MYLANLABS-2024M1031939

PATIENT
  Sex: Female
  Weight: 65.7 kg

DRUGS (18)
  1. AMNESTEEM [Suspect]
     Active Substance: ISOTRETINOIN
     Indication: Acne
     Dosage: 20 MILLIGRAM, QD, (ONE BY MOUTH ONE TIME A DAY WITH FOOD)
     Route: 048
     Dates: start: 20231107, end: 202402
  2. AMNESTEEM [Suspect]
     Active Substance: ISOTRETINOIN
     Dosage: 30 MILLIGRAM, QD, (ONE BY MOUTH DAILY WITH FOOD)
     Route: 048
     Dates: start: 20240305, end: 20240306
  3. ISOTRETINOIN [Concomitant]
     Active Substance: ISOTRETINOIN
     Dosage: UNK
  4. ZYRTEC [Concomitant]
     Active Substance: CETIRIZINE HYDROCHLORIDE
     Dosage: 10 MILLIGRAM, QD (DAILY)
     Route: 065
  5. GUANFACINE [Concomitant]
     Active Substance: GUANFACINE
     Dosage: 1 MILLIGRAM, QD
     Route: 065
  6. COLACE [Concomitant]
     Active Substance: DOCUSATE SODIUM
     Dosage: 100 MILLIGRAM, QD
     Route: 065
  7. HYDROXYZINE HYDROCHLORIDE [Concomitant]
     Active Substance: HYDROXYZINE HYDROCHLORIDE
     Dosage: UNK
     Route: 065
  8. MELATONIN [Concomitant]
     Active Substance: MELATONIN
     Dosage: UNK
     Route: 065
  9. FLONASE [Concomitant]
     Active Substance: FLUTICASONE PROPIONATE
     Dosage: UNK
     Route: 055
  10. BENZOYL PEROXIDE [Concomitant]
     Active Substance: BENZOYL PEROXIDE
     Dosage: UNK
     Route: 061
  11. TAZAROTENE [Concomitant]
     Active Substance: TAZAROTENE
     Dosage: UNK
     Route: 061
  12. VENLAFAXINE HYDROCHLORIDE [Concomitant]
     Active Substance: VENLAFAXINE HYDROCHLORIDE
     Dosage: UNK, (EXTENDED RELEASE)
     Route: 065
  13. AVAR [Concomitant]
     Active Substance: SULFACETAMIDE SODIUM\SULFUR
     Dosage: UNK
     Route: 065
  14. SULFACLEANSE 8/4 [Concomitant]
     Active Substance: SULFACETAMIDE SODIUM\SULFUR
     Dosage: UNK
     Route: 065
  15. ORTHO TRI CYCLEN LO [Concomitant]
     Active Substance: ETHINYL ESTRADIOL\NORGESTIMATE
     Dosage: UNK
     Route: 065
  16. KETOCONAZOLE [Concomitant]
     Active Substance: KETOCONAZOLE
     Dosage: UNK
     Route: 065
  17. LAMISIL [Concomitant]
     Active Substance: TERBINAFINE HYDROCHLORIDE
     Dosage: UNK
     Route: 065
  18. TAZORAC [Concomitant]
     Active Substance: TAZAROTENE
     Dosage: UNK
     Route: 065

REACTIONS (1)
  - Suicide attempt [Unknown]
